FAERS Safety Report 25958499 (Version 5)
Quarter: 2025Q4

REPORT INFORMATION
  Report Type: Report from Study
  Country: US (occurrence: US)
  Receive Date: 20251024
  Receipt Date: 20251218
  Transmission Date: 20260117
  Serious: Yes (Other)
  Sender: PFIZER
  Company Number: US-PFIZER INC-202500209877

PATIENT
  Age: 71 Year
  Sex: Female
  Weight: 61.678 kg

DRUGS (3)
  1. IBRANCE [Suspect]
     Active Substance: PALBOCICLIB
     Indication: Neoplasm malignant
     Dosage: 75 MG, CYCLIC (1 EACH DAY FOR 3 WEEKS, THEN OFF 1 WEEK)
     Route: 048
  2. DENOSUMAB [Suspect]
     Active Substance: DENOSUMAB
     Indication: Neoplasm malignant
     Dosage: UNK, (SHOT, ONCE A MONTH)
     Dates: start: 2023
  3. DENOSUMAB [Suspect]
     Active Substance: DENOSUMAB
     Dosage: 120 MG, MONTHLY (14 DOSES)
     Dates: start: 20230123, end: 20241205

REACTIONS (2)
  - Exposed bone in jaw [Not Recovered/Not Resolved]
  - Fracture [Unknown]

NARRATIVE: CASE EVENT DATE: 20250121
